FAERS Safety Report 24388445 (Version 1)
Quarter: 2024Q4

REPORT INFORMATION
  Report Type: Spontaneous
  Country: US (occurrence: None)
  Receive Date: 20241001
  Receipt Date: 20241001
  Transmission Date: 20250114
  Serious: Yes (Disabling)
  Sender: Public
  Company Number: None

PATIENT
  Age: 33 Year
  Sex: Female
  Weight: 61.23 kg

DRUGS (1)
  1. MIRENA [Suspect]
     Active Substance: LEVONORGESTREL

REACTIONS (6)
  - Urinary tract infection [None]
  - Arthralgia [None]
  - Joint swelling [None]
  - Erythema [None]
  - Complication associated with device [None]
  - Inflammation [None]

NARRATIVE: CASE EVENT DATE: 20240927
